FAERS Safety Report 6371292-7 (Version None)
Quarter: 2009Q3

REPORT INFORMATION
  Report Type: 
  Country: None (occurrence: None)
  Receive Date: 20090918
  Receipt Date: 20090908
  Transmission Date: 20100115
  Serious: Yes (Other)
  Sender: FDA-Public Use
  Company Number: 8051977

PATIENT
  Age: 76 Year
  Sex: Male

DRUGS (5)
  1. KEPPRA [Suspect]
     Dosage: 1000 MG ONCE PO
     Route: 048
     Dates: start: 20090908, end: 20090908
  2. THEOPHYLLINE [Suspect]
     Dosage: 200 MG ONCE PO
     Route: 048
     Dates: start: 20090908, end: 20090908
  3. KALINOR-RETARD P [Suspect]
     Dosage: ONCE PO
     Route: 048
     Dates: start: 20090908, end: 20090908
  4. LUMINAL SODIUM [Suspect]
     Dosage: 100 MG ONCE PO
     Route: 048
     Dates: start: 20090908, end: 20090908
  5. RIVOTRIL [Suspect]
     Dosage: ONCE PO
     Route: 048
     Dates: start: 20090908, end: 20090908

REACTIONS (2)
  - ACCIDENTAL EXPOSURE [None]
  - LOSS OF CONSCIOUSNESS [None]
